FAERS Safety Report 6341520-2 (Version None)
Quarter: 2009Q3

REPORT INFORMATION
  Report Type: 
  Country: None (occurrence: None)
  Receive Date: 20090904
  Receipt Date: 20090902
  Transmission Date: 20100115
  Serious: Yes (Hospitalization, Other)
  Sender: FDA-Public Use
  Company Number: US-MERCK-0710USA03033

PATIENT
  Age: 74 Year
  Sex: Female
  Weight: 38 kg

DRUGS (5)
  1. FOSAMAX [Suspect]
     Indication: OSTEOPOROSIS
     Route: 048
     Dates: start: 20020801, end: 20060107
  2. CYPROHEPTADINE HYDROCHLORIDE [Concomitant]
     Indication: APPETITE DISORDER
     Route: 048
  3. LISINOPRIL [Concomitant]
     Indication: HYPERTENSION
     Route: 048
  4. PENTOXIFYLLINE [Concomitant]
     Indication: CARDIOVASCULAR INSUFFICIENCY
     Route: 048
  5. HYDROCHLOROTHIAZIDE [Concomitant]
     Route: 048

REACTIONS (29)
  - ABSCESS [None]
  - ANXIETY [None]
  - DENTAL CARIES [None]
  - DEPRESSION [None]
  - DYSPHAGIA [None]
  - ENTEROCOCCAL INFECTION [None]
  - FALL [None]
  - FEMUR FRACTURE [None]
  - FISTULA [None]
  - GINGIVAL BLEEDING [None]
  - GINGIVAL DISORDER [None]
  - GINGIVAL INFECTION [None]
  - IMPAIRED HEALING [None]
  - JAW FRACTURE [None]
  - JOINT RANGE OF MOTION DECREASED [None]
  - KLEBSIELLA INFECTION [None]
  - OESOPHAGEAL DISORDER [None]
  - OESOPHAGEAL HYPOMOTILITY [None]
  - ORAL INFECTION [None]
  - ORAL TORUS [None]
  - OSTEOMYELITIS [None]
  - OSTEONECROSIS [None]
  - PAIN [None]
  - PATHOLOGICAL FRACTURE [None]
  - RHEUMATOID ARTHRITIS [None]
  - SPEECH DISORDER [None]
  - SYNOVIAL CYST [None]
  - URINARY TRACT INFECTION [None]
  - WEIGHT DECREASED [None]
